FAERS Safety Report 5872819-1 (Version None)
Quarter: 2008Q3

REPORT INFORMATION
  Report Type: 
  Country: None (occurrence: None)
  Receive Date: 20080905
  Receipt Date: 20080903
  Transmission Date: 20090109
  Serious: Yes (Hospitalization)
  Sender: FDA-Public Use
  Company Number: DE-ABBOTT-08P-062-0474102-00

PATIENT
  Sex: Female

DRUGS (4)
  1. HUMIRA [Suspect]
     Indication: PSORIASIS
     Route: 058
     Dates: start: 20080528
  2. MORPHINE HCL ELIXIR [Concomitant]
     Indication: DRUG USE FOR UNKNOWN INDICATION
  3. ANTIHYPERTENSIVES [Concomitant]
     Indication: HYPERTENSION
  4. ANTIDIABETIC MEDICATION [Concomitant]
     Indication: DIABETES MELLITUS

REACTIONS (2)
  - RASH [None]
  - SKIN EXFOLIATION [None]
